FAERS Safety Report 10717960 (Version 1)
Quarter: 2015Q1

REPORT INFORMATION
  Report Type: Report from Study
  Country: ES (occurrence: ES)
  Receive Date: 20150116
  Receipt Date: 20150116
  Transmission Date: 20150721
  Serious: Yes (Other)
  Sender: FDA-Public Use
  Company Number: ES-ABBVIE-15P-144-1333745-00

PATIENT
  Age: 44 Year
  Sex: Male

DRUGS (1)
  1. DUODOPA [Suspect]
     Active Substance: CARBIDOPA\LEVODOPA
     Indication: PARKINSON^S DISEASE
     Route: 050
     Dates: start: 201302

REACTIONS (4)
  - Weight increased [Unknown]
  - Catheter site infection [Unknown]
  - Stoma site infection [Unknown]
  - Device dislocation [Unknown]

NARRATIVE: CASE EVENT DATE: 2013
